FAERS Safety Report 24776549 (Version 1)
Quarter: 2024Q4

REPORT INFORMATION
  Report Type: Spontaneous
  Country: CN (occurrence: CN)
  Receive Date: 20241226
  Receipt Date: 20241226
  Transmission Date: 20250114
  Serious: Yes (Other)
  Sender: Kenvue
  Company Number: CN-JOHNSON + JOHNSON CONSUMER SERVICES EAME-20241205877

PATIENT

DRUGS (4)
  1. IBUPROFEN [Suspect]
     Active Substance: IBUPROFEN
     Indication: Patent ductus arteriosus
     Dosage: 10 MILLIGRAM/KILOGRAM, INITIAL DOSE, ONCE
  2. IBUPROFEN [Suspect]
     Active Substance: IBUPROFEN
     Dosage: 5 MILLIGRAM/KILOGRAM, AFTER 24HRS OF INITIAL DOSE
  3. IBUPROFEN [Suspect]
     Active Substance: IBUPROFEN
     Dosage: 5 MILLIGRAM/KILOGRAM, AFTER 48 HRS OF INITIAL DOSE
  4. DEXTROSE [Suspect]
     Active Substance: DEXTROSE MONOHYDRATE
     Indication: Patent ductus arteriosus
     Dosage: 5 PERCENT

REACTIONS (6)
  - Off label use [Unknown]
  - Hyperbilirubinaemia [Unknown]
  - Feeding intolerance [Unknown]
  - Oliguria [Unknown]
  - Necrotising colitis [Unknown]
  - Therapeutic response unexpected [Unknown]
